FAERS Safety Report 24994514 (Version 1)
Quarter: 2025Q1

REPORT INFORMATION
  Report Type: Spontaneous
  Country: US (occurrence: None)
  Receive Date: 20250220
  Receipt Date: 20250220
  Transmission Date: 20250409
  Serious: No
  Sender: FDA-CTU
  Company Number: None

PATIENT
  Age: 45 Year
  Sex: Female
  Weight: 83 kg

DRUGS (1)
  1. FERUMOXYTOL [Suspect]
     Active Substance: FERUMOXYTOL
     Indication: Iron deficiency

REACTIONS (6)
  - Dizziness [None]
  - Dyspnoea [None]
  - Feeling hot [None]
  - Infusion related reaction [None]
  - Therapy interrupted [None]
  - Nausea [None]

NARRATIVE: CASE EVENT DATE: 20241113
